FAERS Safety Report 9894607 (Version 2)
Quarter: 2014Q1

REPORT INFORMATION
  Report Type: Spontaneous
  Country: JP (occurrence: JP)
  Receive Date: 20140213
  Receipt Date: 20140227
  Transmission Date: 20141002
  Serious: Yes (Other)
  Sender: FDA-Public Use
  Company Number: PHHY2014JP015458

PATIENT
  Age: 65 Year
  Sex: Male

DRUGS (4)
  1. 5-FLUOROURACIL [Suspect]
     Indication: METASTASES TO LUNG
  2. OXALIPLATIN [Suspect]
     Indication: METASTASES TO LUNG
  3. FOLINIC ACID [Suspect]
     Indication: METASTASES TO LUNG
  4. BEVACIZUMAB [Suspect]
     Indication: METASTASES TO LUNG

REACTIONS (2)
  - Deep vein thrombosis [Recovering/Resolving]
  - Pulmonary thrombosis [Recovering/Resolving]
